FAERS Safety Report 19537795 (Version 1)
Quarter: 2021Q3

REPORT INFORMATION
  Report Type: Spontaneous
  Country: GR (occurrence: GR)
  Receive Date: 20210713
  Receipt Date: 20210713
  Transmission Date: 20211014
  Serious: Yes (Hospitalization, Other)
  Sender: FDA-Public Use
  Company Number: GR-B.I. PHARMACEUTICALS,INC./RIDGEFIELD-2021-BI-113775

PATIENT
  Age: 80 Year
  Sex: Male
  Weight: 80 kg

DRUGS (4)
  1. CONCOR [Concomitant]
     Active Substance: BISOPROLOL FUMARATE
     Indication: PRODUCT USED FOR UNKNOWN INDICATION
  2. PRADAXA [Suspect]
     Active Substance: DABIGATRAN ETEXILATE MESYLATE
     Indication: ATRIAL FIBRILLATION
     Route: 048
     Dates: end: 20210701
  3. ZENCIL [Concomitant]
     Indication: HYPERTENSION
  4. OPRAZIUM [Concomitant]
     Indication: PRODUCT USED FOR UNKNOWN INDICATION

REACTIONS (5)
  - Subdural haematoma [Not Recovered/Not Resolved]
  - Haematuria [Recovered/Resolved]
  - Fall [Recovered/Resolved]
  - Subarachnoid haemorrhage [Not Recovered/Not Resolved]
  - Brain contusion [Not Recovered/Not Resolved]

NARRATIVE: CASE EVENT DATE: 20210701
